FAERS Safety Report 13340517 (Version 6)
Quarter: 2018Q2

REPORT INFORMATION
  Report Type: Report from Study
  Country: CO (occurrence: CO)
  Receive Date: 20170316
  Receipt Date: 20180525
  Transmission Date: 20180711
  Serious: Yes (Hospitalization, Other)
  Sender: FDA-Public Use
  Company Number: CO-AMGEN-COLSL2017026980

PATIENT
  Age: 37 Year
  Sex: Female

DRUGS (4)
  1. NPLATE [Suspect]
     Active Substance: ROMIPLOSTIM
     Dosage: 250 MCG, QWK
     Route: 058
  2. NPLATE [Suspect]
     Active Substance: ROMIPLOSTIM
     Indication: IMMUNE THROMBOCYTOPENIC PURPURA
     Dosage: 125 MCG, QWK
     Route: 058
     Dates: start: 20160907
  3. NPLATE [Suspect]
     Active Substance: ROMIPLOSTIM
     Dosage: 125 MCG, QWK
     Route: 058
     Dates: start: 20170811
  4. NPLATE [Suspect]
     Active Substance: ROMIPLOSTIM
     Dosage: 220 MCG, QWK
     Route: 058

REACTIONS (9)
  - Vaginal prolapse [Not Recovered/Not Resolved]
  - Intentional product misuse [Not Recovered/Not Resolved]
  - Bladder injury [Not Recovered/Not Resolved]
  - Feeling hot [Unknown]
  - Abdominal pain [Unknown]
  - Discomfort [Recovering/Resolving]
  - Vaginal haemorrhage [Unknown]
  - Thrombocytosis [Recovered/Resolved]
  - Thrombocytopenia [Recovered/Resolved]

NARRATIVE: CASE EVENT DATE: 20170212
